FAERS Safety Report 24466535 (Version 1)
Quarter: 2024Q4

REPORT INFORMATION
  Report Type: Spontaneous
  Country: US (occurrence: US)
  Receive Date: 20241018
  Receipt Date: 20241018
  Transmission Date: 20250115
  Serious: Yes (Hospitalization)
  Sender: BRISTOL-MYERS SQUIBB COMPANY
  Company Number: US-BRISTOL-MYERS SQUIBB COMPANY-2024-162174

PATIENT
  Age: 77 Year
  Sex: Female

DRUGS (1)
  1. ONUREG [Suspect]
     Active Substance: AZACITIDINE
     Indication: Product used for unknown indication
     Dosage: TAKE 1 TABLET BY MOUTH ONCE DAILY ON DAYS 1-14, THEN REST FOR 14 DAYS (28 DAY CYCLE)
     Route: 048

REACTIONS (3)
  - Constipation [Unknown]
  - Diarrhoea [Unknown]
  - Vomiting [Unknown]
